FAERS Safety Report 5628412-9 (Version None)
Quarter: 2008Q1

REPORT INFORMATION
  Report Type: 
  Country: None (occurrence: None)
  Receive Date: 20080215
  Receipt Date: 20080206
  Transmission Date: 20080703
  Serious: Yes (Other)
  Sender: FDA-Public Use
  Company Number: US-PFIZER INC-2007104996

PATIENT
  Sex: Female
  Weight: 57.2 kg

DRUGS (11)
  1. LIPITOR [Interacting]
     Indication: BLOOD CHOLESTEROL
     Dosage: FREQ:EVERYDAY
  2. TRICOR [Suspect]
  3. VITAMIN E [Interacting]
  4. WARFARIN SODIUM [Concomitant]
  5. PLAVIX [Concomitant]
  6. ASPIRIN [Concomitant]
  7. ALL OTHER THERAPEUTIC PRODUCTS [Concomitant]
  8. VITAMINS [Concomitant]
  9. LASIX [Concomitant]
  10. SYNTHROID [Concomitant]
  11. NIASPAN [Concomitant]

REACTIONS (7)
  - ARTHRITIS [None]
  - CEREBROVASCULAR ACCIDENT [None]
  - DIARRHOEA [None]
  - DRUG INTERACTION [None]
  - MEDICATION RESIDUE [None]
  - RASH [None]
  - RENAL DISORDER [None]
